FAERS Safety Report 22594893 (Version 1)
Quarter: 2023Q2

REPORT INFORMATION
  Report Type: Spontaneous
  Country: US (occurrence: None)
  Receive Date: 20230612
  Receipt Date: 20230612
  Transmission Date: 20230721
  Serious: Yes (Other)
  Sender: FDA-Public Use
  Company Number: None

PATIENT
  Age: 60 Year
  Sex: Female
  Weight: 72 kg

DRUGS (4)
  1. DICYCLOMINE HYDROCHLORIDE [Suspect]
     Active Substance: DICYCLOMINE HYDROCHLORIDE
     Indication: Gastrointestinal disorder
     Dosage: FREQUENCY : AS NEEDED;?
     Route: 030
  2. JARDIANCE [Concomitant]
     Active Substance: EMPAGLIFLOZIN
  3. INSULIN [Concomitant]
  4. OLMESARTAN [Concomitant]
     Active Substance: OLMESARTAN

REACTIONS (15)
  - Pain in extremity [None]
  - Screaming [None]
  - Injection site rash [None]
  - Burning sensation [None]
  - Peripheral swelling [None]
  - Crying [None]
  - Muscle injury [None]
  - Skin injury [None]
  - Rash erythematous [None]
  - Scab [None]
  - Muscle necrosis [None]
  - Skin necrosis [None]
  - Nerve injury [None]
  - Muscular weakness [None]
  - Sensitive skin [None]

NARRATIVE: CASE EVENT DATE: 20220911
